FAERS Safety Report 4284709-9 (Version None)
Quarter: 2004Q1

REPORT INFORMATION
  Report Type: 
  Country: None (occurrence: None)
  Receive Date: 20040130
  Receipt Date: 20040119
  Transmission Date: 20041129
  Serious: Yes (Other)
  Sender: FDA-Public Use
  Company Number: GB-JNJFOC-20040103489

PATIENT
  Age: 8 Year
  Sex: Female

DRUGS (2)
  1. CONCERTA [Suspect]
     Indication: DISTURBANCE IN ATTENTION
     Dosage: 18 MG, ORAL
     Route: 048
     Dates: start: 20031201
  2. CONCERTA [Suspect]
     Indication: PSYCHOMOTOR HYPERACTIVITY
     Dosage: 18 MG, ORAL
     Route: 048
     Dates: start: 20031201

REACTIONS (2)
  - BLINDNESS [None]
  - COLOBOMA [None]
